FAERS Safety Report 9607357 (Version 1)
Quarter: 2013Q4

REPORT INFORMATION
  Report Type: Spontaneous
  Country: US (occurrence: None)
  Receive Date: 20131007
  Receipt Date: 20131007
  Transmission Date: 20140711
  Serious: Yes (Life-Threatening, Hospitalization)
  Sender: FDA-Public Use
  Company Number: SYM-2013-11103

PATIENT
  Age: 61 Year
  Sex: Male

DRUGS (4)
  1. RIBAVIRIN [Suspect]
     Indication: HEPATITIS C
     Dates: start: 2000
  2. MESTINON [Suspect]
     Indication: MYASTHENIA GRAVIS
  3. PEG-IFN(PEGINTERFERON)(NULL) [Suspect]
     Indication: HEPATITIS C
     Dates: start: 201106, end: 201111
  4. TELAPREVIR [Suspect]
     Indication: HEPATITIS C
     Dates: start: 201106, end: 201109

REACTIONS (7)
  - Leukopenia [None]
  - Myasthenia gravis [None]
  - Rash [None]
  - Mobility decreased [None]
  - Dysphonia [None]
  - Hypoxia [None]
  - No therapeutic response [None]
